FAERS Safety Report 6752805-X (Version None)
Quarter: 2010Q2

REPORT INFORMATION
  Report Type: 
  Country: None (occurrence: None)
  Receive Date: 20100603
  Receipt Date: 20100519
  Transmission Date: 20101027
  Serious: Yes (Hospitalization)
  Sender: FDA-Public Use
  Company Number: DE-MYLANLABS-2010S1008878

PATIENT
  Age: 43 Year
  Sex: Female

DRUGS (3)
  1. RISPERIDONE [Suspect]
     Indication: SCHIZOPHRENIA
     Dosage: 6 MG/DAY
  2. CLOZAPINE [Suspect]
     Dosage: DOSE UNIT: UNKNOWN
  3. CLOZAPINE [Concomitant]
     Indication: SCHIZOPHRENIA
     Dosage: 600 MG/DAY

REACTIONS (1)
  - HEPATITIS [None]
